FAERS Safety Report 25722212 (Version 6)
Quarter: 2025Q4

REPORT INFORMATION
  Report Type: Spontaneous
  Country: JP (occurrence: JP)
  Receive Date: 20250825
  Receipt Date: 20251217
  Transmission Date: 20260117
  Serious: No
  Sender: ABBVIE
  Company Number: JP-ABBVIE-6426002

PATIENT
  Age: 44 Year
  Sex: Female

DRUGS (3)
  1. SKYRIZI [Suspect]
     Active Substance: RISANKIZUMAB-RZAA
     Indication: Psoriasis
     Dosage: FORM STRENGTH: 150 MILLIGRAM
     Route: 058
     Dates: start: 20250701, end: 20250729
  2. SKYRIZI [Suspect]
     Active Substance: RISANKIZUMAB-RZAA
     Route: 058
  3. ISONIAZID [Suspect]
     Active Substance: ISONIAZID
     Indication: Antibiotic prophylaxis
     Dosage: USED TWICE
     Route: 065

REACTIONS (3)
  - White blood cell count decreased [Not Recovered/Not Resolved]
  - Iron deficiency anaemia [Not Recovered/Not Resolved]
  - Full blood count decreased [Not Recovered/Not Resolved]

NARRATIVE: CASE EVENT DATE: 20250101
